FAERS Safety Report 8964891 (Version 2)
Quarter: 2013Q3

REPORT INFORMATION
  Report Type: Report from Study
  Country: US (occurrence: US)
  Receive Date: 20121213
  Receipt Date: 20130702
  Transmission Date: 20140515
  Serious: Yes (Other)
  Sender: FDA-Public Use
  Company Number: US-BAXTER-2012BAX026493

PATIENT
  Sex: Male

DRUGS (3)
  1. ARALAST NP [Suspect]
     Indication: PRODUCT USED FOR UNKNOWN INDICATION
     Route: 042
  2. OXYGEN [Concomitant]
     Indication: PRODUCT USED FOR UNKNOWN INDICATION
  3. OXYGEN [Concomitant]

REACTIONS (3)
  - Pneumonia [Recovering/Resolving]
  - Hypercapnia [Unknown]
  - Confusional state [Unknown]
